FAERS Safety Report 13245627 (Version 3)
Quarter: 2017Q1

REPORT INFORMATION
  Report Type: Spontaneous
  Country: FR (occurrence: FR)
  Receive Date: 20170217
  Receipt Date: 20170320
  Transmission Date: 20170428
  Serious: Yes (Other)
  Sender: FDA-Public Use
  Company Number: FR-JNJFOC-20170212612

PATIENT
  Age: 55 Year
  Sex: Female
  Weight: 69.6 kg

DRUGS (6)
  1. DUROGESIC [Suspect]
     Active Substance: FENTANYL
     Indication: METASTASES TO PERITONEUM
     Route: 003
     Dates: start: 20170210, end: 20170211
  2. LYNPARZA [Concomitant]
     Active Substance: OLAPARIB
     Indication: METASTASES TO PERITONEUM
     Route: 065
  3. DUROGESIC [Suspect]
     Active Substance: FENTANYL
     Indication: METASTASES TO PERITONEUM
     Route: 003
     Dates: start: 20160401
  4. DUROGESIC [Suspect]
     Active Substance: FENTANYL
     Indication: METASTASES TO PERITONEUM
     Dosage: PATCH WITHOUT COLOURED EDGES
     Route: 003
     Dates: start: 20170213
  5. VOGALENE [Concomitant]
     Active Substance: METOPIMAZINE
     Indication: NAUSEA
     Route: 065
  6. ESOMEPRAZOLE [Concomitant]
     Active Substance: ESOMEPRAZOLE
     Indication: ABDOMINAL PAIN UPPER
     Route: 065

REACTIONS (14)
  - Headache [Recovered/Resolved]
  - Palpitations [Recovered/Resolved]
  - Product use issue [Unknown]
  - Product quality issue [Unknown]
  - Insomnia [Recovered/Resolved]
  - Off label use [Unknown]
  - Skin reaction [Recovered/Resolved]
  - Nervousness [Unknown]
  - Suicidal ideation [Recovered/Resolved]
  - Withdrawal syndrome [Recovered/Resolved]
  - Nausea [Recovered/Resolved]
  - Vertigo [Recovered/Resolved]
  - Urticaria [Recovered/Resolved]
  - Diarrhoea [Recovered/Resolved]

NARRATIVE: CASE EVENT DATE: 201702
